FAERS Safety Report 7541223-2 (Version None)
Quarter: 2011Q2

REPORT INFORMATION
  Report Type: 
  Country: None (occurrence: None)
  Receive Date: 20110610
  Receipt Date: 20110609
  Transmission Date: 20111010
  Serious: Yes (Death, Other)
  Sender: FDA-Public Use
  Company Number: FR-MERCK-1105FRA00067

PATIENT
  Age: 74 Year
  Sex: Male
  Weight: 86 kg

DRUGS (13)
  1. METFORMIN HCL [Suspect]
     Route: 048
     Dates: start: 20101118
  2. PRAVASTATIN SODIUM [Concomitant]
     Route: 065
  3. SPIRONOLACTONE [Concomitant]
     Route: 065
  4. JANUVIA [Suspect]
     Route: 048
     Dates: start: 20101118
  5. ACENOCOUMAROL [Concomitant]
     Indication: CEREBROVASCULAR ACCIDENT
     Route: 065
  6. METFORMIN HCL [Suspect]
     Indication: DIABETES MELLITUS
     Route: 048
     Dates: start: 20020101, end: 20101117
  7. ACENOCOUMAROL [Concomitant]
     Indication: CARDIAC FAILURE
     Route: 065
  8. MOLSIDOMINE [Concomitant]
     Route: 065
  9. INSULIN DETEMIR [Concomitant]
     Indication: DIABETES MELLITUS
     Route: 051
     Dates: start: 20110420
  10. JANUVIA [Suspect]
     Indication: DIABETES MELLITUS
     Route: 048
     Dates: start: 20100827, end: 20101117
  11. FUROSEMIDE [Concomitant]
     Indication: CARDIAC FAILURE
     Route: 065
  12. PERINDOPRIL ERBUMINE [Concomitant]
     Indication: CARDIAC FAILURE
     Route: 065
  13. AMIODARONE [Concomitant]
     Indication: CARDIAC FAILURE
     Route: 065

REACTIONS (4)
  - MYOCARDIAL INFARCTION [None]
  - OVERDOSE [None]
  - DRUG INEFFECTIVE [None]
  - MALIGNANT NEOPLASM OF AMPULLA OF VATER [None]
